FAERS Safety Report 25418210 (Version 1)
Quarter: 2025Q2

REPORT INFORMATION
  Report Type: Spontaneous
  Country: US (occurrence: None)
  Receive Date: 20250606
  Receipt Date: 20250606
  Transmission Date: 20250717
  Serious: Yes (Life-Threatening, Hospitalization)
  Sender: FDA-CTU
  Company Number: None

PATIENT
  Age: 65 Year
  Sex: Male

DRUGS (1)
  1. KETOROLAC TROMETHAMINE [Suspect]
     Active Substance: KETOROLAC TROMETHAMINE
     Indication: Radiculopathy
     Route: 042
     Dates: start: 20250116, end: 20250116

REACTIONS (3)
  - Nausea [None]
  - Vomiting [None]
  - Wheezing [None]

NARRATIVE: CASE EVENT DATE: 20250116
